FAERS Safety Report 8216836-5 (Version None)
Quarter: 2012Q1

REPORT INFORMATION
  Report Type: 
  Country: None (occurrence: None)
  Receive Date: 20120316
  Receipt Date: 20120312
  Transmission Date: 20120608
  Serious: Yes (Death, Other)
  Sender: FDA-Public Use
  Company Number: IT-ASTRAZENECA-2012SE15595

PATIENT
  Sex: Female

DRUGS (5)
  1. CARDIOASPIRIN (ASA) [Concomitant]
     Dosage: 100 MG
     Route: 048
  2. PANTORC (PANTOPRAZOLE) [Concomitant]
     Dosage: GASTRO RESISTANT
  3. ZYPREXA [Concomitant]
     Dosage: COATED-TABLETS
  4. DEPONIT (NITROGLYCERINE) [Concomitant]
     Dosage: TRANSDERMAL PATCH
  5. MERREM [Suspect]
     Indication: PNEUMONITIS
     Route: 042
     Dates: start: 20120214, end: 20120221

REACTIONS (2)
  - SEPSIS [None]
  - RENAL FAILURE ACUTE [None]
